FAERS Safety Report 9005013 (Version 1)
Quarter: 2013Q1

REPORT INFORMATION
  Report Type: Spontaneous
  Country: US (occurrence: None)
  Receive Date: 20130107
  Receipt Date: 20130107
  Transmission Date: 20140127
  Serious: Yes (Other)
  Sender: FDA-Public Use
  Company Number: None

PATIENT
  Age: 22 Year
  Sex: Female
  Weight: 45.36 kg

DRUGS (1)
  1. MIRENA [Suspect]

REACTIONS (4)
  - Procedural pain [None]
  - Procedural pain [None]
  - Device expulsion [None]
  - Amenorrhoea [None]
